FAERS Safety Report 24355053 (Version 4)
Quarter: 2024Q4

REPORT INFORMATION
  Report Type: Report from Study
  Country: US (occurrence: US)
  Receive Date: 20240923
  Receipt Date: 20241119
  Transmission Date: 20250115
  Serious: No
  Sender: SUNOVION
  Company Number: US-SUMITOMO PHARMA SWITZERLAND GMBH-2024SPA002231

PATIENT

DRUGS (2)
  1. ORGOVYX [Suspect]
     Active Substance: RELUGOLIX
     Indication: Prostate cancer
     Dosage: 120 MG, QD
     Route: 048
     Dates: start: 20240815
  2. GEMTESA [Concomitant]
     Active Substance: VIBEGRON
     Dosage: UNK
     Route: 048

REACTIONS (4)
  - Neuropathy peripheral [Unknown]
  - COVID-19 [Unknown]
  - Glucose tolerance impaired [Unknown]
  - Incorrect dose administered [Unknown]
